FAERS Safety Report 8765697 (Version 1)
Quarter: 2012Q4

REPORT INFORMATION
  Report Type: 
  Country: US (occurrence: US)
  Receive Date: 20120904
  Receipt Date: 20120904
  Transmission Date: 20130627
  Serious: Yes (Hospitalization)
  Sender: FDA-Public Use
  Company Number: PHHO2012US012745

PATIENT
  Age: 62 Year
  Sex: Male
  Weight: 63 kg

DRUGS (13)
  1. MYFORTIC [Suspect]
     Indication: PROPHYLAXIS AGAINST TRANSPLANT REJECTION
     Dosage: 720 mg, BID
     Route: 048
     Dates: start: 20100116
  2. MYFORTIC [Suspect]
     Dosage: UNK
     Route: 048
  3. RAPAMUNE [Suspect]
     Indication: PROPHYLAXIS AGAINST TRANSPLANT REJECTION
     Dosage: 4 mg, QD
     Route: 048
     Dates: start: 20100421, end: 20100512
  4. ASPIRIN [Concomitant]
     Dates: start: 20100119
  5. ZOCOR [Concomitant]
     Dates: start: 20100119
  6. NORVASC [Concomitant]
     Dates: start: 20100316
  7. LANTUS [Concomitant]
     Dates: start: 20100316
  8. HUMALOG [Concomitant]
     Dates: start: 20100116
  9. ALLOPURINOL [Concomitant]
     Dates: start: 20100119
  10. PRILOSEC [Concomitant]
     Dates: start: 20100117
  11. VALCYTE [Concomitant]
     Dates: start: 20100117
  12. TIMOPTIC [Concomitant]
     Dates: start: 20100120
  13. TRUSOPT [Concomitant]
     Dates: start: 20100120

REACTIONS (3)
  - Pancytopenia [Recovered/Resolved]
  - Pyrexia [Recovered/Resolved]
  - Decreased appetite [None]
